FAERS Safety Report 7488689-4 (Version None)
Quarter: 2011Q2

REPORT INFORMATION
  Report Type: 
  Country: None (occurrence: None)
  Receive Date: 20110518
  Receipt Date: 20110510
  Transmission Date: 20111010
  Serious: Yes (Other)
  Sender: FDA-Public Use
  Company Number: B0719473A

PATIENT
  Age: 36 Year
  Sex: Female

DRUGS (8)
  1. ACETAMINOPHEN [Suspect]
     Route: 065
  2. MEPERIDINE HCL [Suspect]
     Route: 065
     Dates: start: 20091222, end: 20091222
  3. FRAXIPARINE [Suspect]
     Route: 065
     Dates: start: 20091222, end: 20100126
  4. BUPIVACAINE HCL [Suspect]
     Route: 065
     Dates: start: 20091222, end: 20091222
  5. LORAZEPAM [Suspect]
     Route: 065
  6. ZINACEF [Suspect]
     Route: 065
     Dates: start: 20091222, end: 20091224
  7. FENTANYL [Suspect]
     Route: 065
     Dates: start: 20091222, end: 20091222
  8. XEFO [Suspect]
     Route: 065
     Dates: start: 20091222, end: 20091229

REACTIONS (2)
  - DRUG EXPOSURE DURING PREGNANCY [None]
  - ABORTION INDUCED [None]
